FAERS Safety Report 5860739-8 (Version None)
Quarter: 2008Q3

REPORT INFORMATION
  Report Type: 
  Country: None (occurrence: None)
  Receive Date: 20080827
  Receipt Date: 20071101
  Transmission Date: 20090109
  Serious: No
  Sender: FDA-Public Use
  Company Number: US-ABBOTT-07P-163-0423232-00

PATIENT
  Sex: Female

DRUGS (5)
  1. NIASPAN [Suspect]
     Indication: DRUG USE FOR UNKNOWN INDICATION
     Route: 048
     Dates: start: 20071001, end: 20071001
  2. NIASPAN [Suspect]
     Route: 048
     Dates: start: 20070801, end: 20070901
  3. NIASPAN [Suspect]
     Route: 048
     Dates: start: 20070901, end: 20071001
  4. NIASPAN [Suspect]
     Route: 048
     Dates: start: 20071001, end: 20071023
  5. BLOOD PRESSURE PILL [Concomitant]
     Indication: DRUG USE FOR UNKNOWN INDICATION
     Route: 048

REACTIONS (3)
  - FLUSHING [None]
  - PRURITUS [None]
  - URTICARIA [None]
